FAERS Safety Report 21480187 (Version 7)
Quarter: 2022Q4

REPORT INFORMATION
  Report Type: Report from Study
  Country: CL (occurrence: None)
  Receive Date: 20221019
  Receipt Date: 20221111
  Transmission Date: 20230113
  Serious: Yes (Hospitalization)
  Sender: FDA-Public Use
  Company Number: CL-Eisai Medical Research-EC-2022-125959

PATIENT
  Age: 74 Year
  Sex: Male
  Weight: 83 kg

DRUGS (8)
  1. LENVATINIB [Suspect]
     Active Substance: LENVATINIB
     Indication: Hepatocellular carcinoma
     Route: 048
     Dates: start: 20220927, end: 20221011
  2. LENVATINIB [Suspect]
     Active Substance: LENVATINIB
     Route: 048
     Dates: start: 20221019
  3. PEMBROLIZUMAB [Suspect]
     Active Substance: PEMBROLIZUMAB
     Indication: Hepatocellular carcinoma
     Dosage: MK-7684A 400 MG (VIBOSTOLIMAB (MK-7684) 200 MG (+) PEMBROLIZUMAB (MK-3475) 200 MG)
     Route: 042
     Dates: start: 20220927, end: 20220927
  4. VIBOSTOLIMAB [Suspect]
     Active Substance: VIBOSTOLIMAB
     Dosage: MK-7684A 400 MG (VIBOSTOLIMAB (MK-7684) 200 MG (+) PEMBROLIZUMAB (MK-3475) 200 MG)
     Route: 042
     Dates: start: 20221019
  5. SPIRONOLACTONE [Concomitant]
     Active Substance: SPIRONOLACTONE
     Dates: start: 20220907, end: 20221012
  6. AMLODIPINE\VALSARTAN [Concomitant]
     Active Substance: AMLODIPINE\VALSARTAN
     Dates: start: 20220907, end: 20221012
  7. TRAMADOL HYDROCHLORIDE [Concomitant]
     Active Substance: TRAMADOL HYDROCHLORIDE
     Dates: start: 20221007, end: 20221020
  8. CELECOXIB [Concomitant]
     Active Substance: CELECOXIB
     Dates: start: 20221007, end: 20221012

REACTIONS (1)
  - Acute kidney injury [Recovered/Resolved]

NARRATIVE: CASE EVENT DATE: 20221012
